FAERS Safety Report 9009734 (Version 2)
Quarter: 2013Q1

REPORT INFORMATION
  Report Type: Spontaneous
  Country: US (occurrence: US)
  Receive Date: 20130110
  Receipt Date: 20130131
  Transmission Date: 20140127
  Serious: Yes (Death, Hospitalization)
  Sender: FDA-Public Use
  Company Number: US-PFIZER INC-2013001642

PATIENT
  Age: 69 Year
  Sex: Female
  Weight: 67.12 kg

DRUGS (2)
  1. REVATIO [Suspect]
     Indication: PULMONARY HYPERTENSION
     Dosage: 20 MG, 3X/DAY
     Route: 048
  2. TRACLEER [Concomitant]
     Dosage: UNK

REACTIONS (3)
  - Cardiac disorder [Fatal]
  - Renal failure [Fatal]
  - Dyspnoea [Fatal]
